FAERS Safety Report 4533108-0 (Version None)
Quarter: 2004Q4

REPORT INFORMATION
  Report Type: 
  Country: None (occurrence: None)
  Receive Date: 20041221
  Receipt Date: 20041123
  Transmission Date: 20050328
  Serious: Yes (Hospitalization)
  Sender: FDA-Public Use
  Company Number: FR-BRISTOL-MYERS SQUIBB COMPANY-12774444

PATIENT
  Age: 50 Year
  Sex: Male

DRUGS (10)
  1. AXEPIM INJ [Suspect]
     Dates: start: 20040923, end: 20041004
  2. AUGMENTIN '125' [Suspect]
     Route: 042
     Dates: start: 20040915, end: 20040922
  3. CIPROFLOXACIN [Suspect]
     Route: 042
     Dates: start: 20040923, end: 20041004
  4. MIDAZOLAM HCL [Suspect]
     Dates: start: 20040915, end: 20041006
  5. FENTANYL [Suspect]
     Dates: start: 20040915, end: 20041005
  6. NEXIUM [Suspect]
     Dosage: INTERRUPTED FROM 21- TO 23-SEP-2004
     Route: 048
     Dates: start: 20040916, end: 20041008
  7. LOVENOX [Concomitant]
  8. MUCOMYST [Concomitant]
     Dates: start: 20040915, end: 20041018
  9. NIMBEX [Concomitant]
     Dates: start: 20040925, end: 20041001
  10. OMEPRAZOLE [Concomitant]
     Dates: start: 20040921, end: 20040923

REACTIONS (1)
  - HEPATITIS [None]
